FAERS Safety Report 9321762 (Version 1)
Quarter: 2013Q2

REPORT INFORMATION
  Report Type: Report from Study
  Country: CA (occurrence: CA)
  Receive Date: 20130531
  Receipt Date: 20130531
  Transmission Date: 20140414
  Serious: Yes (Other)
  Sender: FDA-Public Use
  Company Number: CA-ABBOTT-12P-028-1027737-00

PATIENT
  Sex: Male

DRUGS (1)
  1. HUMIRA [Suspect]
     Indication: CROHN^S DISEASE
     Dosage: LATEST DOSE: 19 MAY 2013
     Route: 058
     Dates: start: 20120312

REACTIONS (3)
  - Sinus arrest [Recovered/Resolved]
  - Heart rate decreased [Recovered/Resolved]
  - Syncope [Recovered/Resolved]
